FAERS Safety Report 18164578 (Version 3)
Quarter: 2023Q2

REPORT INFORMATION
  Report Type: Spontaneous
  Country: US (occurrence: US)
  Receive Date: 20200818
  Receipt Date: 20230518
  Transmission Date: 20230722
  Serious: Yes (Other)
  Sender: FDA-Public Use
  Company Number: US-GILEAD-2020-0490453

PATIENT
  Sex: Male
  Weight: 96.599 kg

DRUGS (42)
  1. VIREAD [Suspect]
     Active Substance: TENOFOVIR DISOPROXIL FUMARATE
     Indication: HIV infection
     Dosage: UNK
     Route: 048
     Dates: start: 2002, end: 200704
  2. VIREAD [Suspect]
     Active Substance: TENOFOVIR DISOPROXIL FUMARATE
     Dosage: UNK
     Route: 048
     Dates: start: 200601, end: 200705
  3. TRUVADA [Suspect]
     Active Substance: EMTRICITABINE\TENOFOVIR DISOPROXIL FUMARATE
     Indication: HIV infection
     Dosage: UNK
     Route: 048
     Dates: start: 2002, end: 20180702
  4. TRUVADA [Suspect]
     Active Substance: EMTRICITABINE\TENOFOVIR DISOPROXIL FUMARATE
     Dosage: UNK
     Route: 048
     Dates: start: 200601, end: 201909
  5. COMPLERA [Suspect]
     Active Substance: EMTRICITABINE\RILPIVIRINE HYDROCHLORIDE\TENOFOVIR DISOPROXIL FUMARATE
     Indication: HIV infection
     Dosage: UNK
     Route: 048
     Dates: start: 2002, end: 20140324
  6. COMPLERA [Suspect]
     Active Substance: EMTRICITABINE\RILPIVIRINE HYDROCHLORIDE\TENOFOVIR DISOPROXIL FUMARATE
     Dosage: UNK
     Route: 048
     Dates: start: 20140224, end: 20140324
  7. DESCOVY [Concomitant]
     Active Substance: EMTRICITABINE\TENOFOVIR ALAFENAMIDE FUMARATE
  8. GENVOYA [Concomitant]
     Active Substance: COBICISTAT\ELVITEGRAVIR\EMTRICITABINE\TENOFOVIR ALAFENAMIDE FUMARATE
  9. CRIXIVAN [Concomitant]
     Active Substance: INDINAVIR SULFATE
  10. EPIVIR [Concomitant]
     Active Substance: LAMIVUDINE
  11. INVIRASE [Concomitant]
     Active Substance: SAQUINAVIR MESYLATE
  12. ISENTRESS [Concomitant]
     Active Substance: RALTEGRAVIR POTASSIUM
  13. KALETRA [Concomitant]
     Active Substance: LOPINAVIR\RITONAVIR
  14. NORVIR [Concomitant]
     Active Substance: RITONAVIR
  15. PREZISTA [Concomitant]
     Active Substance: DARUNAVIR ETHANOLATE
  16. TIVICAY [Concomitant]
     Active Substance: DOLUTEGRAVIR SODIUM
  17. VIDEX EC [Concomitant]
     Active Substance: DIDANOSINE
  18. VIRACEPT [Concomitant]
     Active Substance: NELFINAVIR MESYLATE
  19. ZERIT [Concomitant]
     Active Substance: STAVUDINE
  20. VITAMINS [Concomitant]
     Active Substance: VITAMINS
  21. ALBUTEROL SULFATE [Concomitant]
     Active Substance: ALBUTEROL SULFATE
  22. AMOXICILLIN [Concomitant]
     Active Substance: AMOXICILLIN
  23. ATROPINE [Concomitant]
     Active Substance: ATROPINE
  24. DARUNAVIR [Concomitant]
     Active Substance: DARUNAVIR
  25. DIDANOSINE [Concomitant]
     Active Substance: DIDANOSINE
  26. DOXYCYCLINE [Concomitant]
     Active Substance: DOXYCYCLINE
  27. GUAIFENESIN [Concomitant]
     Active Substance: GUAIFENESIN
  28. HYDROXYZINE [Concomitant]
     Active Substance: HYDROXYZINE HYDROCHLORIDE
  29. PITAVASTATIN [Concomitant]
     Active Substance: PITAVASTATIN
  30. NAPROXEN [Concomitant]
     Active Substance: NAPROXEN
  31. PREDNISOLONE [Concomitant]
     Active Substance: PREDNISOLONE
  32. RALTEGRAVIR [Concomitant]
     Active Substance: RALTEGRAVIR
  33. RITONAVIR [Concomitant]
     Active Substance: RITONAVIR
  34. SULFAMETHOXAZOLE AND TRIMETHOPRIM [Concomitant]
     Active Substance: SULFAMETHOXAZOLE\TRIMETHOPRIM
  35. VALACYCLOVIR HYDROCHLORIDE [Concomitant]
     Active Substance: VALACYCLOVIR HYDROCHLORIDE
  36. CETIRIZINE [Concomitant]
     Active Substance: CETIRIZINE HYDROCHLORIDE
  37. FLUTICASONE PROPIONATE [Concomitant]
     Active Substance: FLUTICASONE PROPIONATE
  38. VALTREX [Concomitant]
     Active Substance: VALACYCLOVIR HYDROCHLORIDE
  39. AMLODIPINE [Concomitant]
     Active Substance: AMLODIPINE BESYLATE
  40. EPZICOM [Concomitant]
     Active Substance: ABACAVIR SULFATE\LAMIVUDINE
  41. TRIUMEQ [Concomitant]
     Active Substance: ABACAVIR SULFATE\DOLUTEGRAVIR SODIUM\LAMIVUDINE
  42. SULFAMETHOXAZOLE\TRIMETHOPRIM [Concomitant]
     Active Substance: SULFAMETHOXAZOLE\TRIMETHOPRIM

REACTIONS (8)
  - Renal impairment [Not Recovered/Not Resolved]
  - Bone disorder [Not Recovered/Not Resolved]
  - Pain [Unknown]
  - Emotional distress [Unknown]
  - Bone demineralisation [Unknown]
  - Blood creatinine increased [Not Recovered/Not Resolved]
  - Hypertension [Not Recovered/Not Resolved]
  - Depression [Unknown]

NARRATIVE: CASE EVENT DATE: 20180101
